FAERS Safety Report 5559977-3 (Version None)
Quarter: 2007Q4

REPORT INFORMATION
  Report Type: 
  Country: None (occurrence: None)
  Receive Date: 20071214
  Receipt Date: 20071016
  Transmission Date: 20080405
  Serious: No
  Sender: FDA-Public Use
  Company Number: US-ABBOTT-07P-163-0421573-00

PATIENT
  Sex: Female
  Weight: 72.64 kg

DRUGS (3)
  1. HUMIRA [Suspect]
     Indication: RHEUMATOID ARTHRITIS
     Route: 058
     Dates: start: 20070301, end: 20070501
  2. HUMIRA [Suspect]
     Route: 058
     Dates: start: 20050101, end: 20070301
  3. HUMIRA [Suspect]
     Route: 058
     Dates: start: 20070501

REACTIONS (3)
  - DRUG INEFFECTIVE [None]
  - PAIN [None]
  - SWELLING [None]
